FAERS Safety Report 11034223 (Version 2)
Quarter: 2015Q2

REPORT INFORMATION
  Report Type: Spontaneous
  Country: US (occurrence: US)
  Receive Date: 20150415
  Receipt Date: 20150523
  Transmission Date: 20150821
  Serious: No
  Sender: FDA-Public Use
  Company Number: US-009507513-1504USA015049

PATIENT
  Age: 4 Year
  Sex: Female
  Weight: 15.42 kg

DRUGS (6)
  1. PULMICORT TURBUHALER [Concomitant]
     Active Substance: BUDESONIDE
     Indication: COUGH
     Dosage: SUSPENSION, SOLUTION (DOSAGE FORM), ROUTE NEBULIZER
     Dates: start: 20150103
  2. ALBUTEROL. [Concomitant]
     Active Substance: ALBUTEROL
     Indication: COUGH
     Dosage: RESPIRATORY SOLUTION, SOLUTION (DOSAGE FORM), ROUTE NEBULIZER
     Dates: start: 20131028
  3. SINGULAIR [Suspect]
     Active Substance: MONTELUKAST SODIUM
     Indication: ASTHMA
  4. SINGULAIR [Suspect]
     Active Substance: MONTELUKAST SODIUM
     Indication: ASTHMA EXERCISE INDUCED
     Dosage: 4 MG, QD
     Route: 048
     Dates: start: 20150310, end: 20150312
  5. ALBUTEROL. [Concomitant]
     Active Substance: ALBUTEROL
     Indication: ASTHMA
  6. PULMICORT TURBUHALER [Concomitant]
     Active Substance: BUDESONIDE
     Indication: ASTHMA

REACTIONS (4)
  - Delirium [Recovered/Resolved]
  - Mood altered [Recovered/Resolved]
  - Personality change [Recovered/Resolved]
  - Psychotic disorder [Recovered/Resolved]

NARRATIVE: CASE EVENT DATE: 20150311
